FAERS Safety Report 9611010 (Version 3)
Quarter: 2014Q1

REPORT INFORMATION
  Report Type: Report from Study
  Country: US (occurrence: US)
  Receive Date: 20131009
  Receipt Date: 20140207
  Transmission Date: 20141002
  Serious: Yes (Other)
  Sender: FDA-Public Use
  Company Number: US-VIIV HEALTHCARE LIMITED-A1044764A

PATIENT
  Age: 31 Year
  Sex: Female

DRUGS (2)
  1. COMBIVIR [Suspect]
     Indication: ANTIVIRAL TREATMENT
     Dosage: 2TAB PER DAY
     Route: 048
     Dates: start: 20130729, end: 20130906
  2. KALETRA [Suspect]
     Indication: ANTIVIRAL TREATMENT
     Dosage: 4U PER DAY
     Route: 048
     Dates: start: 20130729, end: 20130906

REACTIONS (3)
  - Abortion induced [Unknown]
  - Placental hypertrophy [Unknown]
  - Exposure during pregnancy [Unknown]
